FAERS Safety Report 7422700-1 (Version None)
Quarter: 2011Q2

REPORT INFORMATION
  Report Type: 
  Country: None (occurrence: None)
  Receive Date: 20110409
  Receipt Date: 20110409
  Transmission Date: 20111010
  Serious: Yes (Other)
  Sender: FDA-Public Use
  Company Number: None

PATIENT
  Sex: Female
  Weight: 61.4 kg

DRUGS (2)
  1. CRESTOR [Suspect]
     Indication: BLOOD CHOLESTEROL INCREASED
     Dosage: 5 MG 1 HS ORAL
     Route: 048
     Dates: start: 20101112
  2. CRESTOR [Suspect]
     Indication: BLOOD TRIGLYCERIDES
     Dosage: 5 MG 1 HS ORAL
     Route: 048
     Dates: start: 20101112

REACTIONS (3)
  - LOSS OF CONTROL OF LEGS [None]
  - FATIGUE [None]
  - ASTHENIA [None]
